FAERS Safety Report 8215287-7 (Version None)
Quarter: 2012Q1

REPORT INFORMATION
  Report Type: 
  Country: None (occurrence: None)
  Receive Date: 20120316
  Receipt Date: 20120313
  Transmission Date: 20120608
  Serious: Yes (Hospitalization, Other)
  Sender: FDA-Public Use
  Company Number: BR-SANOFI-AVENTIS-2012SA017231

PATIENT
  Age: 87 Year
  Sex: Male
  Weight: 68 kg

DRUGS (2)
  1. APIDRA [Suspect]
     Indication: TYPE 2 DIABETES MELLITUS
     Route: 065
  2. LANTUS [Suspect]
     Indication: TYPE 2 DIABETES MELLITUS
     Route: 065

REACTIONS (5)
  - AGGRESSION [None]
  - DEMENTIA ALZHEIMER'S TYPE [None]
  - AMNESIA [None]
  - POOR PERSONAL HYGIENE [None]
  - DECREASED APPETITE [None]
